FAERS Safety Report 15037873 (Version 1)
Quarter: 2018Q3

REPORT INFORMATION
  Report Type: Spontaneous
  Country: US (occurrence: US)
  Receive Date: 20180620
  Receipt Date: 20180620
  Transmission Date: 20181010
  Serious: No
  Sender: FDA-Public Use
  Company Number: US-NEPHRON PHARMACEUTICALS CORPORATION-2049722

PATIENT
  Sex: Female

DRUGS (1)
  1. ALBUTEROL SULFATE INHALATION SOLUTION, 0.083% [Suspect]
     Active Substance: ALBUTEROL SULFATE
     Route: 055

REACTIONS (6)
  - Throat irritation [Unknown]
  - Respiratory tract congestion [Unknown]
  - Rhinorrhoea [Unknown]
  - Sneezing [Unknown]
  - Drug hypersensitivity [None]
  - Cough [Unknown]
